APPROVED DRUG PRODUCT: PERPHENAZINE
Active Ingredient: PERPHENAZINE
Strength: 2MG
Dosage Form/Route: TABLET;ORAL
Application: A205973 | Product #001 | TE Code: AB
Applicant: WILSHIRE PHARMACEUTICALS INC
Approved: Dec 17, 2015 | RLD: No | RS: No | Type: RX